FAERS Safety Report 9294072 (Version 1)
Quarter: 2013Q1

REPORT INFORMATION
  Report Type: Spontaneous
  Country: US (occurrence: None)
  Receive Date: 20121218
  Receipt Date: 20121218
  Transmission Date: 20140127
  Serious: Yes (Hospitalization)
  Sender: FDA-Public Use
  Company Number: PHEH2012US015457

PATIENT
  Age: 56 Year
  Sex: Male

DRUGS (10)
  1. ZOMETA (ZOLEDRONATE) UNKNOWN [Suspect]
     Indication: NEOPLASM MALIGNANT
  2. METHOCARBAMOL [Suspect]
  3. MORPHINE SULFATE ER [Suspect]
  4. DIAZEPAM (DIAZEPAM) [Suspect]
  5. CARVEDILOL (CARVEDILOL) [Suspect]
  6. SUTENT [Suspect]
  7. TERAZOSIN [Suspect]
  8. CYCLOBENZAPRINE (CYCLOBENZAPRINE) [Suspect]
  9. MORPHINE SULFATE IR TABLET [Suspect]
  10. LISINOPRIL (LISINOPRIL) [Suspect]

REACTIONS (1)
  - Infection [None]
